FAERS Safety Report 14420244 (Version 1)
Quarter: 2018Q1

REPORT INFORMATION
  Report Type: Spontaneous
  Country: US (occurrence: US)
  Receive Date: 20180122
  Receipt Date: 20180122
  Transmission Date: 20180509
  Serious: No
  Sender: FDA-Public Use
  Company Number: US-ROCHE-1917915

PATIENT
  Age: 51 Year
  Sex: Female
  Weight: 105.78 kg

DRUGS (3)
  1. RITUXAN [Suspect]
     Active Substance: RITUXIMAB
     Indication: GRANULOMATOSIS WITH POLYANGIITIS
     Dosage: FIRST DOSE
     Route: 042
     Dates: start: 20160415
  2. RITUXAN [Suspect]
     Active Substance: RITUXIMAB
     Indication: POLYMYALGIA RHEUMATICA
     Dosage: SECOND DOSE
     Route: 042
     Dates: start: 201604
  3. RITUXAN [Suspect]
     Active Substance: RITUXIMAB
     Dosage: SECOND DOSE
     Route: 042
     Dates: start: 20170329

REACTIONS (2)
  - Tooth fracture [Not Recovered/Not Resolved]
  - Drug ineffective [Unknown]

NARRATIVE: CASE EVENT DATE: 20160622
